FAERS Safety Report 4964915-8 (Version None)
Quarter: 2006Q2

REPORT INFORMATION
  Report Type: 
  Country: None (occurrence: None)
  Receive Date: 20060403
  Receipt Date: 20060320
  Transmission Date: 20061013
  Serious: Yes (Other)
  Sender: FDA-Public Use
  Company Number: 222961

PATIENT
  Age: 29 Year
  Sex: Female

DRUGS (2)
  1. RITUXIMAB(RITUXIMAB) CONC FOR SOLUTION FOR INFUSION [Suspect]
     Indication: SYSTEMIC LUPUS ERYTHEMATOSUS
     Dosage: 375 MG/M2, Q4W,
  2. STEROIDS (STEROID NOS) [Concomitant]

REACTIONS (12)
  - BLOOD ALBUMIN DECREASED [None]
  - GLOMERULONEPHRITIS [None]
  - JUGULAR VEIN THROMBOSIS [None]
  - NEPHRITIC SYNDROME [None]
  - PLEURISY [None]
  - POLYARTHRITIS [None]
  - RASH [None]
  - SUBCLAVIAN VEIN THROMBOSIS [None]
  - THROMBOSIS [None]
  - TREATMENT NONCOMPLIANCE [None]
  - VASCULITIS [None]
  - VENOUS THROMBOSIS [None]
